FAERS Safety Report 11785643 (Version 1)
Quarter: 2015Q4

REPORT INFORMATION
  Report Type: Spontaneous
  Country: US (occurrence: None)
  Receive Date: 20151125
  Receipt Date: 20151125
  Transmission Date: 20160305
  Serious: Yes (Life-Threatening, Hospitalization)
  Sender: FDA-Public Use
  Company Number: None

PATIENT
  Age: 54 Year
  Sex: Male
  Weight: 68.04 kg

DRUGS (7)
  1. TRAZONODE [Concomitant]
  2. SYNTHROID [Concomitant]
     Active Substance: LEVOTHYROXINE SODIUM
  3. FENTANYL TRANSDERMAL SYSTEM [Concomitant]
     Active Substance: FENTANYL
  4. PROZAC [Concomitant]
     Active Substance: FLUOXETINE HYDROCHLORIDE
  5. FENTANYL. [Suspect]
     Active Substance: FENTANYL
     Indication: CANCER PAIN
     Dosage: 100NCG?5 PATCHES?3 PATCHES FOR 3 DAYS. ?PLACED ONTO SKIN CHANGED EVERY 3 DAYS
     Route: 061
     Dates: start: 20150101, end: 20150801
  6. PROTONIX [Concomitant]
     Active Substance: PANTOPRAZOLE SODIUM
  7. LISINOPRIL. [Concomitant]
     Active Substance: LISINOPRIL

REACTIONS (8)
  - Hypertension [None]
  - Diarrhoea [None]
  - Product formulation issue [None]
  - Vomiting [None]
  - Seizure [None]
  - Product quality issue [None]
  - Drug ineffective [None]
  - Drug withdrawal syndrome [None]

NARRATIVE: CASE EVENT DATE: 20150801
